FAERS Safety Report 18181855 (Version 4)
Quarter: 2020Q4

REPORT INFORMATION
  Report Type: Report from Study
  Country: VN (occurrence: VN)
  Receive Date: 20200821
  Receipt Date: 20201110
  Transmission Date: 20210113
  Serious: Yes (Other)
  Sender: FDA-Public Use
  Company Number: VN-JNJFOC-20200814557

PATIENT
  Age: 50 Year
  Sex: Female

DRUGS (12)
  1. DRIPTANE [Concomitant]
     Active Substance: OXYBUTYNIN
     Dosage: 1 TAB/ DAY MORNING
  2. KALIUM CHLORATUM [Concomitant]
     Active Substance: POTASSIUM CHLORIDE
     Dosage: 1 TAB/DAY AFTERNOON
  3. FOLACID [Concomitant]
     Dosage: 4 TABS WEEKLY ON MONDAY
     Route: 065
  4. SIMPONI [Suspect]
     Active Substance: GOLIMUMAB
     Indication: RHEUMATOID ARTHRITIS
     Route: 058
     Dates: start: 202002
  5. OMEPRAZOL                          /00661201/ [Concomitant]
     Active Substance: OMEPRAZOLE
     Dosage: 1 TAB/ DAY 10 MINS BEFORE BREAKFAST
  6. METHOTREXATE. [Concomitant]
     Active Substance: METHOTREXATE
     Dosage: 8 TAB WEEKLY ON SATURDAYS (4 MORNING, 4 AFTERNOON)
  7. FOSAMAX PLUS D [Concomitant]
     Active Substance: ALENDRONATE SODIUM\CHOLECALCIFEROL
     Dosage: 4 TABS, TAKE 1 WEEKLY ON FRIDAY MORNING WITH LOT OF WATER, BEFORE BREAKFAST 30 MINS
     Route: 065
  8. BRIOZCAL [Concomitant]
     Dosage: 1 TAB DAILY IN THE MRG
     Route: 065
  9. DRIPTANE [Concomitant]
     Active Substance: OXYBUTYNIN
     Dosage: 1 TAB DAILY IN THE MORNING
     Route: 065
  10. MEDROL [Concomitant]
     Active Substance: METHYLPREDNISOLONE
     Dosage: 2 TAB/DAY AFTER BREAKFAST
     Route: 065
  11. TENOFOVIR [Concomitant]
     Active Substance: TENOFOVIR
     Dosage: 1 TAB DAILY IN THE EVENING
     Route: 065
  12. BAROLE [Concomitant]
     Dosage: 1 TAB DAILY 30 MINS BEFORE MEALS
     Route: 065

REACTIONS (1)
  - Urinary tract infection [Recovering/Resolving]

NARRATIVE: CASE EVENT DATE: 2020
